FAERS Safety Report 9210223 (Version 1)
Quarter: 2013Q2

REPORT INFORMATION
  Report Type: Spontaneous
  Country: IT (occurrence: IT)
  Receive Date: 20130404
  Receipt Date: 20130404
  Transmission Date: 20140414
  Serious: Yes (Hospitalization)
  Sender: FDA-Public Use
  Company Number: IT-ASTRAZENECA-2013SE20746

PATIENT
  Sex: Female

DRUGS (5)
  1. NEXIUM [Suspect]
     Indication: PROPHYLAXIS AGAINST GASTROINTESTINAL ULCER
     Route: 048
     Dates: start: 20130208, end: 20130219
  2. COUMADIN [Interacting]
     Route: 048
     Dates: start: 20110607
  3. ALTIAZEM [Concomitant]
     Route: 048
  4. NITROCOR [Concomitant]
     Dosage: 5 MG/24H
  5. ZYLORIC [Concomitant]
     Route: 048

REACTIONS (2)
  - Drug interaction [Recovered/Resolved]
  - International normalised ratio increased [Recovered/Resolved]
